FAERS Safety Report 7344944-X (Version None)
Quarter: 2011Q1

REPORT INFORMATION
  Report Type: 
  Country: None (occurrence: None)
  Receive Date: 20110310
  Receipt Date: 20110228
  Transmission Date: 20110831
  Serious: Yes (Other)
  Sender: FDA-Public Use
  Company Number: US-CELGENEUS-163-21880-11030372

PATIENT
  Sex: Male
  Weight: 78.088 kg

DRUGS (19)
  1. OYSTER SHELL [Concomitant]
     Route: 065
  2. REVLIMID [Suspect]
     Indication: MULTIPLE MYELOMA
     Dosage: 25 MILLIGRAM
     Route: 048
     Dates: start: 20100901, end: 20110101
  3. PYRIDOXINE [Concomitant]
     Route: 065
  4. FISH OIL [Concomitant]
     Route: 065
  5. REVLIMID [Suspect]
     Dosage: 15 MILLIGRAM
     Route: 048
     Dates: start: 20110201
  6. MORPHINE [Concomitant]
     Route: 048
  7. GARLIC [Concomitant]
     Route: 065
  8. PROBIOTIC [Concomitant]
     Route: 065
  9. POTASSIUM [Concomitant]
     Route: 065
  10. VITAMIN B [Concomitant]
     Route: 065
  11. ASPIRIN [Concomitant]
     Dosage: 81 MILLIGRAM
     Route: 065
  12. ACETAMINOPHEN AND HYDROCODONE BITARTRATE [Concomitant]
     Route: 065
  13. OXYCODONE HCL [Concomitant]
     Route: 065
  14. LEVOTHROID [Concomitant]
     Route: 065
  15. ACIDOPHILUS [Concomitant]
     Route: 065
  16. METOPROLOL [Concomitant]
     Route: 065
  17. MULTI-VITAMINS [Concomitant]
     Route: 065
  18. ASCORBIC ACID [Concomitant]
     Route: 065
  19. ZINC SULFATE [Concomitant]
     Route: 065

REACTIONS (2)
  - PLASMACYTOMA [None]
  - ANAEMIA [None]
